FAERS Safety Report 23078137 (Version 2)
Quarter: 2023Q4

REPORT INFORMATION
  Report Type: Spontaneous
  Country: JP (occurrence: JP)
  Receive Date: 20231018
  Receipt Date: 20231107
  Transmission Date: 20240109
  Serious: Yes (Hospitalization)
  Sender: FDA-Public Use
  Company Number: JP-CHUGAI-2023036961AA

PATIENT
  Sex: Male

DRUGS (10)
  1. AVASTIN [Suspect]
     Active Substance: BEVACIZUMAB
     Indication: Colorectal cancer
     Route: 065
     Dates: start: 202303
  2. AVASTIN [Suspect]
     Active Substance: BEVACIZUMAB
     Route: 065
     Dates: start: 202307
  3. IRINOTECAN HYDROCHLORIDE [Concomitant]
     Active Substance: IRINOTECAN HYDROCHLORIDE
     Indication: Colorectal cancer
     Dates: start: 202307
  4. FLUOROURACIL [Concomitant]
     Active Substance: FLUOROURACIL
     Indication: Colorectal cancer
     Dates: start: 202303
  5. FLUOROURACIL [Concomitant]
     Active Substance: FLUOROURACIL
     Dates: start: 202303
  6. FLUOROURACIL [Concomitant]
     Active Substance: FLUOROURACIL
     Dates: start: 202307
  7. FLUOROURACIL [Concomitant]
     Active Substance: FLUOROURACIL
     Dates: start: 202307
  8. LEVOLEUCOVORIN CALCIUM [Concomitant]
     Active Substance: LEVOLEUCOVORIN CALCIUM
     Indication: Colorectal cancer
     Dates: start: 202303
  9. LEVOLEUCOVORIN CALCIUM [Concomitant]
     Active Substance: LEVOLEUCOVORIN CALCIUM
     Dates: start: 202307
  10. OXALIPLATIN [Concomitant]
     Active Substance: OXALIPLATIN
     Indication: Colorectal cancer
     Dates: start: 202303

REACTIONS (2)
  - Fall [Unknown]
  - Clavicle fracture [Unknown]
